FAERS Safety Report 14300735 (Version 10)
Quarter: 2019Q1

REPORT INFORMATION
  Report Type: Spontaneous
  Country: DE (occurrence: DE)
  Receive Date: 20171219
  Receipt Date: 20190211
  Transmission Date: 20190417
  Serious: Yes (Life-Threatening, Hospitalization, Other)
  Sender: FDA-Public Use
  Company Number: DE-AUROBINDO-AUR-APL-2017-45926

PATIENT
  Age: 72 Year
  Sex: Male

DRUGS (9)
  1. TICAGRELOR. [Interacting]
     Active Substance: TICAGRELOR
     Indication: PERCUTANEOUS CORONARY INTERVENTION
     Dosage: 90 MG, Q12H (DRUG DOSE REGIMEN: 1-0-1)
     Route: 048
  2. BECLOMETASONE;FENOTEROL [Concomitant]
     Indication: PRODUCT USED FOR UNKNOWN INDICATION
     Dosage: UNK, Q12H, FROMULATION: INHALATION (1)
     Route: 045
  3. RAMIPRIL. [Concomitant]
     Active Substance: RAMIPRIL
     Indication: PRODUCT USED FOR UNKNOWN INDICATION
     Dosage: 2.5 MG, Q12H (DRUG DOSE REGIMEN: 1-0-1)
     Route: 065
  4. TICAGRELOR. [Interacting]
     Active Substance: TICAGRELOR
     Indication: ANTIPLATELET THERAPY
  5. PANTOPRAZOLE [Concomitant]
     Active Substance: PANTOPRAZOLE
     Indication: PRODUCT USED FOR UNKNOWN INDICATION
     Dosage: 20 MG, QD (DRUG DOSE REGIMEN: 1-0-0)
     Route: 065
  6. RAMIPRIL. [Concomitant]
     Active Substance: RAMIPRIL
     Dosage: 3 UNK
     Route: 065
  7. ACETYLSALICYLIC ACID [Concomitant]
     Active Substance: ASPIRIN
     Indication: PRODUCT USED FOR UNKNOWN INDICATION
     Dosage: 100 MILLIGRAM, ONCE A DAY
     Route: 065
  8. SIMVASTATIN FILM-COATED TABLET [Suspect]
     Active Substance: SIMVASTATIN
     Indication: PRODUCT USED FOR UNKNOWN INDICATION
     Dosage: 20 MG, DAILY IN THE EVENING
     Route: 048
  9. TIOTROPIUM BROMIDE [Concomitant]
     Active Substance: TIOTROPIUM BROMIDE
     Indication: PRODUCT USED FOR UNKNOWN INDICATION
     Dosage: UNK UNK, Q12H, FORMULATION: INHALATION (1)
     Route: 045

REACTIONS (2)
  - Drug interaction [Recovered/Resolved]
  - Rhabdomyolysis [Recovered/Resolved]
